FAERS Safety Report 12624508 (Version 1)
Quarter: 2016Q3

REPORT INFORMATION
  Report Type: Spontaneous
  Country: US (occurrence: None)
  Receive Date: 20160804
  Receipt Date: 20160804
  Transmission Date: 20161109
  Serious: No
  Sender: FDA-Public Use
  Company Number: None

PATIENT
  Age: 55 Year
  Sex: Female
  Weight: 72.58 kg

DRUGS (3)
  1. DYE FREE CHILDRENS ALLERGY VIALS, 12.5MG CVS [Suspect]
     Active Substance: DIPHENHYDRAMINE HYDROCHLORIDE
     Indication: HYPERSENSITIVITY
     Dosage: 1 TEASPOON(S)
     Route: 048
     Dates: start: 20160726, end: 20160726
  2. DYE FREE LIQUID ANTIHISTIME [Concomitant]
  3. SYNTHROID [Concomitant]
     Active Substance: LEVOTHYROXINE SODIUM

REACTIONS (3)
  - Diarrhoea [None]
  - Throat irritation [None]
  - Retching [None]

NARRATIVE: CASE EVENT DATE: 20160726
